FAERS Safety Report 9909681 (Version 1)
Quarter: 2014Q1

REPORT INFORMATION
  Report Type: Spontaneous
  Country: US (occurrence: None)
  Receive Date: 20140218
  Receipt Date: 20140218
  Transmission Date: 20141002
  Serious: Yes (Hospitalization)
  Sender: FDA-Public Use
  Company Number: None

PATIENT
  Age: 34 Year
  Sex: Female
  Weight: 81.65 kg

DRUGS (1)
  1. EXCEDRIN [Suspect]
     Indication: TOOTHACHE
     Dates: start: 20140210

REACTIONS (6)
  - Pruritus [None]
  - Erythema [None]
  - Swelling [None]
  - Urticaria [None]
  - Burning sensation [None]
  - Swollen tongue [None]
